FAERS Safety Report 5137445-0 (Version None)
Quarter: 2006Q4

REPORT INFORMATION
  Report Type: 
  Country: None (occurrence: None)
  Receive Date: 20061030
  Receipt Date: 20051104
  Transmission Date: 20070319
  Serious: No
  Sender: FDA-Public Use
  Company Number: US-GLAXOSMITHKLINE-A0580901A

PATIENT
  Age: 79 Year
  Sex: Female

DRUGS (12)
  1. ADVAIR HFA [Suspect]
     Indication: ASTHMA
     Dosage: 1PUFF PER DAY
     Route: 055
     Dates: start: 20050901
  2. PULMICORT [Concomitant]
  3. XOPENEX [Concomitant]
  4. SINGULAIR [Concomitant]
  5. CLARINEX [Concomitant]
  6. GLUCOTROL [Concomitant]
  7. PREDNISONE TAB [Concomitant]
  8. LEVOTHROID [Concomitant]
  9. ASPIRIN [Concomitant]
  10. PREMARIN CREAM [Concomitant]
  11. PROVENTIL-HFA [Concomitant]
  12. ASTELIN [Concomitant]

REACTIONS (4)
  - ABDOMINAL PAIN UPPER [None]
  - BACK PAIN [None]
  - FATIGUE [None]
  - PLEURITIC PAIN [None]
